FAERS Safety Report 5218871-8 (Version None)
Quarter: 2007Q1

REPORT INFORMATION
  Report Type: 
  Country: None (occurrence: None)
  Receive Date: 20070123
  Receipt Date: 20070116
  Transmission Date: 20070707
  Serious: Yes (Death, Life-Threatening, Hospitalization)
  Sender: FDA-Public Use
  Company Number: 150536USA

PATIENT
  Age: 71 Year
  Sex: Male

DRUGS (12)
  1. FLUOROURACIL [Suspect]
     Indication: OESOPHAGEAL ADENOCARCINOMA METASTATIC
     Dosage: SEE IMAGE
     Route: 041
     Dates: start: 20061115, end: 20061120
  2. CISPLATIN [Suspect]
     Dosage: 6.5714 MG (184 MG, 1 IN 28 D), INTRAVENOUS (NOT OTHERQWISE SPECIFIED)
     Route: 042
     Dates: start: 20061115, end: 20061115
  3. LISINOPRIL [Concomitant]
  4. METFORMIN HCL [Concomitant]
  5. PROPACET 100 [Concomitant]
  6. LOPERAMIDE HYDROCHLORIDE [Concomitant]
  7. LOMOTIL [Concomitant]
  8. ONDANSETRON [Concomitant]
  9. XYLOXYLIN [Concomitant]
  10. PROCHLORPERAZINE EDISYLATE [Concomitant]
  11. SUCRALFATE [Concomitant]
  12. ESOMEPRAZOLE MAGNESIUM [Concomitant]

REACTIONS (28)
  - ACIDOSIS [None]
  - ALPHA HAEMOLYTIC STREPTOCOCCAL INFECTION [None]
  - ATELECTASIS [None]
  - BACTERAEMIA [None]
  - BACTERIAL INFECTION [None]
  - EFFUSION [None]
  - ESCHERICHIA INFECTION [None]
  - GASTROINTESTINAL HAEMORRHAGE [None]
  - GASTROINTESTINAL ISCHAEMIA [None]
  - GASTROOESOPHAGEAL CANCER [None]
  - HEART RATE INCREASED [None]
  - HYPOTENSION [None]
  - INTESTINAL INFARCTION [None]
  - INTESTINAL ISCHAEMIA [None]
  - INTESTINAL PERFORATION [None]
  - LACTIC ACIDOSIS [None]
  - LOWER RESPIRATORY TRACT INFECTION [None]
  - LUNG INFECTION [None]
  - MULTI-ORGAN FAILURE [None]
  - RESPIRATORY DISTRESS [None]
  - SALMONELLOSIS [None]
  - SECRETION DISCHARGE [None]
  - SEPSIS [None]
  - SHOCK [None]
  - SMALL INTESTINAL OBSTRUCTION [None]
  - STAPHYLOCOCCAL INFECTION [None]
  - VASOCONSTRICTION [None]
  - VENOUS THROMBOSIS [None]
